FAERS Safety Report 6220662-6 (Version None)
Quarter: 2009Q2

REPORT INFORMATION
  Report Type: 
  Country: None (occurrence: None)
  Receive Date: 20090610
  Receipt Date: 20090601
  Transmission Date: 20091009
  Serious: Yes (Hospitalization, Other)
  Sender: FDA-Public Use
  Company Number: US-BIOGENIDEC-2009BI016089

PATIENT
  Age: 53 Year
  Sex: Female
  Weight: 79 kg

DRUGS (7)
  1. TYSABRI [Suspect]
     Indication: MULTIPLE SCLEROSIS
     Route: 042
     Dates: start: 20090226
  2. PAROXETINE HCL [Concomitant]
     Indication: DEPRESSION
     Route: 048
  3. MODAFINIL [Concomitant]
     Indication: FATIGUE
     Route: 048
     Dates: start: 20070516
  4. ACETAMINOPHEN [Concomitant]
     Indication: ARTHRITIS
     Route: 048
  5. NALFON [Concomitant]
     Indication: PAIN
     Route: 048
     Dates: start: 20090101
  6. OXYTROL [Concomitant]
     Indication: NEUROGENIC BLADDER
     Dates: start: 20090110
  7. PROZAC [Concomitant]

REACTIONS (2)
  - ANAPHYLACTIC REACTION [None]
  - DRUG HYPERSENSITIVITY [None]
